FAERS Safety Report 15693514 (Version 4)
Quarter: 2021Q1

REPORT INFORMATION
  Report Type: Spontaneous
  Country: US (occurrence: US)
  Receive Date: 20181206
  Receipt Date: 20210306
  Transmission Date: 20210419
  Serious: Yes (Other)
  Sender: FDA-Public Use
  Company Number: PHEH2018US051569

PATIENT
  Age: 69 Year
  Sex: Female

DRUGS (1)
  1. TASIGNA [Suspect]
     Active Substance: NILOTINIB
     Indication: CHRONIC MYELOID LEUKAEMIA
     Dosage: 2 DF, BID
     Route: 048
     Dates: start: 201106, end: 2017

REACTIONS (31)
  - Chronic respiratory failure [Unknown]
  - Fatigue [Unknown]
  - Dizziness [Unknown]
  - Arteriosclerosis [Unknown]
  - Lower gastrointestinal haemorrhage [Unknown]
  - Chronic kidney disease [Unknown]
  - Peripheral arterial occlusive disease [Unknown]
  - Cerebral arteriosclerosis [Unknown]
  - Lymphadenopathy [Unknown]
  - Pain [Unknown]
  - Arthralgia [Unknown]
  - Emotional distress [Unknown]
  - Acute kidney injury [Unknown]
  - Gangrene [Unknown]
  - Cardiac failure congestive [Unknown]
  - Dyspnoea [Unknown]
  - Hypertension [Unknown]
  - Femoral neck fracture [Unknown]
  - Chronic obstructive pulmonary disease [Unknown]
  - Back pain [Unknown]
  - Renal failure [Unknown]
  - Sinus tachycardia [Unknown]
  - Skin ulcer [Unknown]
  - Iron deficiency anaemia [Unknown]
  - Malabsorption [Unknown]
  - Injury [Unknown]
  - Anxiety [Unknown]
  - Peripheral vascular disorder [Unknown]
  - Hypoxia [Unknown]
  - Facial paralysis [Unknown]
  - Peripheral ischaemia [Unknown]

NARRATIVE: CASE EVENT DATE: 20150513
